FAERS Safety Report 10820148 (Version 1)
Quarter: 2015Q1

REPORT INFORMATION
  Report Type: Report from Study
  Country: US (occurrence: US)
  Receive Date: 20150218
  Receipt Date: 20150218
  Transmission Date: 20150721
  Serious: Yes (Other)
  Sender: FDA-Public Use
  Company Number: US-ABBVIE-14K-163-1297269-00

PATIENT
  Age: 67 Year
  Sex: Female
  Weight: 56.75 kg

DRUGS (4)
  1. HUMIRA [Suspect]
     Active Substance: ADALIMUMAB
     Indication: CROHN^S DISEASE
     Route: 065
     Dates: start: 20130215, end: 20140328
  2. MULTIVITAMIN [Concomitant]
     Active Substance: VITAMINS
     Indication: PRODUCT USED FOR UNKNOWN INDICATION
  3. ATORVASTATIN [Concomitant]
     Active Substance: ATORVASTATIN
     Indication: PRODUCT USED FOR UNKNOWN INDICATION
  4. HUMIRA [Suspect]
     Active Substance: ADALIMUMAB
     Route: 065
     Dates: start: 201407, end: 20141013

REACTIONS (7)
  - Skin warm [Not Recovered/Not Resolved]
  - Scar [Not Recovered/Not Resolved]
  - Breast cancer stage I [Recovering/Resolving]
  - Muscle rupture [Unknown]
  - Crohn^s disease [Unknown]
  - Erythema [Not Recovered/Not Resolved]
  - Scar pain [Not Recovered/Not Resolved]

NARRATIVE: CASE EVENT DATE: 2014
